FAERS Safety Report 22057080 (Version 1)
Quarter: 2023Q1

REPORT INFORMATION
  Report Type: Spontaneous
  Country: JP (occurrence: JP)
  Receive Date: 20230303
  Receipt Date: 20230303
  Transmission Date: 20230418
  Serious: Yes (Other)
  Sender: FDA-Public Use
  Company Number: JP-ALKEM LABORATORIES LIMITED-JP-ALKEM-2023-01215

PATIENT
  Age: 1 Year
  Sex: Female

DRUGS (4)
  1. TACROLIMUS [Suspect]
     Active Substance: TACROLIMUS
     Indication: Immunosuppression
     Dosage: UNK
     Route: 048
  2. ACYCLOVIR [Concomitant]
     Active Substance: ACYCLOVIR
     Indication: Antiviral prophylaxis
     Dosage: 5 MILLIGRAM/KILOGRAM, TID, (EVERY 8 HOURS)5 DAYS
     Route: 042
  3. FLOMOXEF SODIUM [Concomitant]
     Active Substance: FLOMOXEF SODIUM
     Indication: Antibiotic prophylaxis
     Dosage: 60 MILLIGRAM/KILOGRAM, TID (EVERY 8 HOURS) 7 DAYS
     Route: 042
  4. FLUCONAZOLE [Concomitant]
     Active Substance: FLUCONAZOLE
     Indication: Antifungal prophylaxis
     Dosage: 2 MILLIGRAM/KILOGRAM, QD, (EVERY 24 HOURS) 7 DAYS
     Route: 042

REACTIONS (2)
  - Partial seizures [Recovered/Resolved]
  - Hyperbilirubinaemia [Unknown]
